FAERS Safety Report 7069318-0 (Version None)
Quarter: 2010Q4

REPORT INFORMATION
  Report Type: 
  Country: None (occurrence: None)
  Receive Date: 20101028
  Receipt Date: 20101025
  Transmission Date: 20110411
  Serious: Yes (Hospitalization)
  Sender: FDA-Public Use
  Company Number: DE-ELI_LILLY_AND_COMPANY-DE201010005807

PATIENT
  Sex: Male
  Weight: 85 kg

DRUGS (12)
  1. PEMETREXED [Suspect]
     Indication: BRONCHIAL CARCINOMA
     Dosage: 1000 MG, UNKNOWN
     Route: 042
     Dates: start: 20100927
  2. ONDANSETRON [Concomitant]
     Dosage: 8 MG, UNKNOWN
     Route: 042
     Dates: start: 20100927
  3. FORTECORTIN [Concomitant]
     Dosage: 8 MG, UNKNOWN
     Route: 042
     Dates: start: 20100927
  4. BERODUAL [Concomitant]
     Dosage: 2 D/F, 3 TIMES DAILY
  5. MST 10 [Concomitant]
     Dosage: 10 MG, DAILY (1/D)
     Route: 065
  6. ASPIRIN [Concomitant]
     Dosage: 100 MG, DAILY (1/D)
     Route: 065
  7. LISINOPRIL [Concomitant]
     Dosage: 2.5 MG, DAILY (1/D)
     Route: 065
  8. SIMVAHEXAL [Concomitant]
     Dosage: 40 MG, DAILY (1/D)
     Route: 065
  9. PANTOPRAZOLE SODIUM [Concomitant]
     Dosage: 40 MG, DAILY (1/D)
     Route: 065
  10. METOPROLOL SUCCINATE [Concomitant]
     Dosage: HALF, DAILY (1/D)
     Route: 065
  11. VITAMINUM B1 [Concomitant]
     Dosage: 300 MG, DAILY (1/D)
     Route: 065
  12. METAMIZOLE SODIUM [Concomitant]
     Dosage: 30 DROPS , 4 TIMES DAILY
     Route: 048

REACTIONS (3)
  - PERSONALITY CHANGE [None]
  - PNEUMONIA [None]
  - VISUAL IMPAIRMENT [None]
